FAERS Safety Report 5269996-2 (Version None)
Quarter: 2007Q1

REPORT INFORMATION
  Report Type: 
  Country: None (occurrence: None)
  Receive Date: 20061214
  Receipt Date: 20060811
  Transmission Date: 20070707
  Serious: Yes (Hospitalization, Other)
  Sender: FDA-Public Use
  Company Number: 2006057884

PATIENT
  Age: 52 Year
  Sex: Male
  Weight: 80.7403 kg

DRUGS (17)
  1. BEXTRA [Suspect]
     Indication: ARTHRITIS
     Dates: start: 20020701
  2. ACETYLSALICYLIC ACID (ACETYSALICYLIC ACID) [Concomitant]
  3. PLAVIX [Concomitant]
  4. ADVAIR DISKUS (FLUTICASONE PROPIONATE, SALMETEROL XINAFOATE) [Concomitant]
  5. ALBUTEROL [Concomitant]
  6. ALLEGRA [Concomitant]
  7. ATROVENT [Concomitant]
  8. PROVIGIL [Concomitant]
  9. EFFEXOR [Concomitant]
  10. LISINOPRIL [Concomitant]
  11. ZOCOR [Concomitant]
  12. PREVACID [Concomitant]
  13. NITROQUICK (GLYCERYL TRINITRATE) [Concomitant]
  14. TOPROL-XL [Concomitant]
  15. FLONASE [Concomitant]
  16. ATROVENT [Concomitant]
  17. ZANAFLEX [Concomitant]

REACTIONS (2)
  - BLOOD CHOLESTEROL INCREASED [None]
  - MYOCARDIAL INFARCTION [None]
